FAERS Safety Report 6775484-4 (Version None)
Quarter: 2010Q2

REPORT INFORMATION
  Report Type: 
  Country: None (occurrence: None)
  Receive Date: 20100617
  Receipt Date: 20100609
  Transmission Date: 20101027
  Serious: Yes (Hospitalization)
  Sender: FDA-Public Use
  Company Number: PHHO2009AU08899

PATIENT
  Sex: Male

DRUGS (7)
  1. NEORAL [Suspect]
     Indication: RENAL TRANSPLANT
  2. MYFORTIC [Suspect]
     Indication: RENAL TRANSPLANT
     Dosage: UNK
     Route: 048
     Dates: start: 20090306, end: 20090712
  3. MYFORTIC [Suspect]
     Dosage: 360 MG, BID
     Route: 048
     Dates: start: 20090713
  4. NO TREATMENT RECEIVED NOMED [Suspect]
     Indication: RENAL TRANSPLANT
     Dosage: UNK
  5. STEROIDS NOS [Concomitant]
     Indication: RENAL TRANSPLANT
  6. VALACYCLOVIR [Concomitant]
     Indication: PROPHYLAXIS
  7. COTRIM [Concomitant]
     Indication: PROPHYLAXIS

REACTIONS (4)
  - CHILLS [None]
  - FEBRILE NEUTROPENIA [None]
  - LETHARGY [None]
  - VOMITING [None]
